FAERS Safety Report 5813386-8 (Version None)
Quarter: 2008Q3

REPORT INFORMATION
  Report Type: 
  Country: None (occurrence: None)
  Receive Date: 20080717
  Receipt Date: 20080708
  Transmission Date: 20090109
  Serious: Yes (Other)
  Sender: FDA-Public Use
  Company Number: US-ROCHE-574789

PATIENT
  Sex: Female
  Weight: 72.1 kg

DRUGS (6)
  1. CAPECITABINE [Suspect]
     Indication: BREAST CANCER
     Dosage: DOSE: 4 DOSE FORMS EVERY DAY, DISCONTINUED AFTER 14 CYCLES
     Route: 048
     Dates: start: 20070920
  2. ARIMIDEX [Concomitant]
  3. ATENOLOL [Concomitant]
  4. LASIX [Concomitant]
  5. NEURONTIN [Concomitant]
  6. AMBIEN [Concomitant]

REACTIONS (1)
  - DISEASE PROGRESSION [None]
